FAERS Safety Report 17348322 (Version 1)
Quarter: 2020Q1

REPORT INFORMATION
  Report Type: Report from Study
  Country: US (occurrence: US)
  Receive Date: 20200129
  Receipt Date: 20200129
  Transmission Date: 20200409
  Serious: No
  Sender: FDA-Public Use
  Company Number: US-EXELIXIS-CABO-19023860

PATIENT
  Age: 65 Year
  Sex: Male

DRUGS (2)
  1. CABOMETYX [Suspect]
     Active Substance: CABOZANTINIB S-MALATE
     Indication: BENIGN NEOPLASM
     Dosage: 60 MG, QD
     Dates: start: 20190823
  2. CABOMETYX [Suspect]
     Active Substance: CABOZANTINIB S-MALATE
     Dosage: 60 MG, W/O FOOD (ALTERNATING 2 DAYS ON/1 DAY OFF)

REACTIONS (4)
  - Erythema [Recovering/Resolving]
  - Blood pressure increased [Recovered/Resolved]
  - Off label use [Unknown]
  - White blood cell count increased [Not Recovered/Not Resolved]

NARRATIVE: CASE EVENT DATE: 20190912
